FAERS Safety Report 4990547-1 (Version None)
Quarter: 2006Q2

REPORT INFORMATION
  Report Type: 
  Country: None (occurrence: None)
  Receive Date: 20060427
  Receipt Date: 20060414
  Transmission Date: 20061013
  Serious: Yes (Other)
  Sender: FDA-Public Use
  Company Number: 2006033350

PATIENT
  Age: 70 Year
  Sex: Male

DRUGS (1)
  1. VIAGRA [Suspect]
     Indication: ILL-DEFINED DISORDER
     Route: 048

REACTIONS (9)
  - BLINDNESS [None]
  - HEADACHE [None]
  - HYPOPERFUSION [None]
  - MACULOPATHY [None]
  - NEUROPATHY [None]
  - OPTIC ISCHAEMIC NEUROPATHY [None]
  - RETINAL DISORDER [None]
  - VISUAL FIELD DEFECT [None]
  - VITREOUS DETACHMENT [None]
